FAERS Safety Report 7679554-8 (Version None)
Quarter: 2011Q3

REPORT INFORMATION
  Report Type: 
  Country: None (occurrence: None)
  Receive Date: 20110809
  Receipt Date: 20110725
  Transmission Date: 20111222
  Serious: Yes (Other)
  Sender: FDA-Public Use
  Company Number: 1000021986

PATIENT
  Age: 84 Year
  Sex: Male
  Weight: 84 kg

DRUGS (17)
  1. TORASEMIDE (TORSEMIDE) (TORSEMIDE) [Concomitant]
  2. NEBIVOLOL (NEBIVOLOL HYDROCHLORIDE) (NEBIVOLOL HYDROCHLORIDE) [Concomitant]
  3. BERODUAL (IPRATROPIUM BROMIDE, FENOTEROL HYDROBROMIDE) (IPRATROPIUM BR [Concomitant]
  4. ALLOPURINOL [Concomitant]
  5. ONBREZ (INDCATEROL MALEATE) (INDCATEROL MALEATE) [Concomitant]
  6. ROFLUMILAST (ROFLUMILAST) (TABLETS) [Suspect]
     Indication: CHRONIC OBSTRUCTIVE PULMONARY DISEASE
     Dosage: 500 MCG (500 MCG,1 IN 1 D),ORAL
     Route: 048
     Dates: start: 20110610, end: 20110614
  7. ACC LONG (ACETYLCYSTEINE) (ACETYLCYSTEINE) [Concomitant]
  8. VIANI (SERETIDE) (SERETIDE) [Concomitant]
  9. ALPHAGAN (BRIMONIDINE TARTRATE) (BRIMONIDINE TARTRATE) [Concomitant]
  10. TAMSULOSIN (TAMSULOSIN) (TAMSULOSIN) [Concomitant]
  11. FINASTERIDE (FINASTERIDE) (FINASTERIDE) [Concomitant]
  12. OXYGEN (OXYGEN) (OXYGEN) [Concomitant]
  13. PREDNISONE [Concomitant]
  14. OLMESARTAN MEDOXOMIL [Concomitant]
  15. PANTOPRAZOLE (PANTOPRAZOLE) (PANTOPRAZOLE) [Concomitant]
  16. SPIRIVA (TIOTROPIUM BROMIDE) (TIOTROPIUM BROMIDE) [Concomitant]
  17. TRUSOPT (DORZOLAMIDE HYDROCHLORIDE) (DORZOLAMIDE HYDROCHLORIDE) [Concomitant]

REACTIONS (6)
  - ANXIETY [None]
  - TREMOR [None]
  - RESTLESSNESS [None]
  - CONFUSIONAL STATE [None]
  - AGITATION [None]
  - DEPRESSION [None]
